FAERS Safety Report 4377034-9 (Version None)
Quarter: 2004Q2

REPORT INFORMATION
  Report Type: 
  Country: None (occurrence: None)
  Receive Date: 20040614
  Receipt Date: 20040602
  Transmission Date: 20050107
  Serious: Yes (Hospitalization)
  Sender: FDA-Public Use
  Company Number: NL-GLAXOSMITHKLINE-B0334806A

PATIENT
  Age: 70 Year
  Sex: Male

DRUGS (13)
  1. SERETIDE [Suspect]
     Indication: ASTHMA
     Dosage: 600MCG PER DAY
     Dates: start: 20040512, end: 20040514
  2. VERAPAMIL HYDROCHLORIDE [Concomitant]
     Dosage: 240MG PER DAY
     Route: 048
  3. RITMOFORINE [Concomitant]
     Dosage: 500MG PER DAY
     Route: 048
  4. BURINEX [Concomitant]
     Dosage: 4MG PER DAY
     Route: 048
  5. PREPULSID [Concomitant]
     Dosage: 30MG PER DAY
     Route: 048
  6. HYZAAR [Concomitant]
     Route: 048
  7. THIAMINE [Concomitant]
     Dosage: 100MG PER DAY
     Route: 048
  8. ACENOCOUMAROL [Concomitant]
     Route: 048
  9. CAPOTEN [Concomitant]
     Dosage: 75MG PER DAY
     Route: 048
  10. METOPROLOL TARTRATE [Concomitant]
     Dosage: 100MG PER DAY
     Route: 048
  11. HUMALOG [Concomitant]
     Dosage: 300U PER DAY
  12. LIPITOR [Concomitant]
     Dosage: 40MG PER DAY
     Route: 048
  13. MOVICOLON [Concomitant]
     Dates: start: 20040413

REACTIONS (2)
  - ARRHYTHMIA [None]
  - DRUG INTERACTION [None]
